FAERS Safety Report 8539612-2 (Version None)
Quarter: 2012Q3

REPORT INFORMATION
  Report Type: 
  Country: None (occurrence: None)
  Receive Date: 20120726
  Receipt Date: 20120719
  Transmission Date: 20120928
  Serious: Yes (Hospitalization)
  Sender: FDA-Public Use
  Company Number: FR-PFIZER INC-2012174388

PATIENT
  Age: 63 Year
  Sex: Male

DRUGS (12)
  1. ZOMETA [Suspect]
     Dosage: UNK
     Route: 042
     Dates: start: 20120515, end: 20120515
  2. OXYCONTIN [Suspect]
     Dosage: 40 MG IN THE MORNING AND 50 MG IN THE EVENING
     Route: 048
  3. VITAMIN B-12 [Concomitant]
     Dosage: 1000 UG, EVERY 3 CYCLES
     Route: 030
  4. METHYLPREDNISOLONE [Suspect]
     Dosage: 120 MG, CYCLIC
     Route: 042
     Dates: start: 20120305, end: 20120515
  5. ALIMTA [Suspect]
     Indication: LUNG ADENOCARCINOMA
     Dosage: 900 MG, CYCLIC
     Route: 042
     Dates: start: 20120305, end: 20120515
  6. ONDANSETRON [Suspect]
     Dosage: 8 MG, CYCLIC
     Route: 042
     Dates: start: 20120305, end: 20120515
  7. DEXAMETHASONE [Suspect]
     Dosage: 4 MG, 2X/DAY
     Route: 048
     Dates: start: 20120304, end: 20120516
  8. OXYCONORM [Concomitant]
     Dosage: 5 MG, AS NEEDED
  9. FOLIC ACID [Suspect]
     Dosage: 0.4 MG, 1X/DAY
     Route: 048
     Dates: start: 20120301
  10. LYRICA [Suspect]
     Dosage: 100 MG, 2X/DAY
     Route: 048
  11. CISPLATIN [Suspect]
     Indication: LUNG ADENOCARCINOMA
     Dosage: 140 MG, CYCLIC
     Route: 042
     Dates: start: 20120305, end: 20120515
  12. EMEND [Suspect]
     Dosage: 125 MG, CYCLIC
     Route: 048
     Dates: start: 20120305, end: 20120515

REACTIONS (2)
  - HAEMOLYTIC ANAEMIA [None]
  - DYSPNOEA [None]
